FAERS Safety Report 25789271 (Version 1)
Quarter: 2025Q3

REPORT INFORMATION
  Report Type: Spontaneous
  Country: US (occurrence: US)
  Receive Date: 20250911
  Receipt Date: 20250911
  Transmission Date: 20251021
  Serious: Yes (Other)
  Sender: Haleon PLC
  Company Number: US-HALEON-2186543

PATIENT
  Age: 67 Year
  Sex: Female
  Weight: 70 kg

DRUGS (9)
  1. SODIUM FLUORIDE [Suspect]
     Active Substance: SODIUM FLUORIDE
     Indication: Dry mouth
  2. DEVICE\XYLITOL [Suspect]
     Active Substance: DEVICE\XYLITOL
     Indication: Dry mouth
  3. BIOTENE NOS [Suspect]
     Active Substance: UNSPECIFIED INGREDIENT
     Indication: Dry mouth
  4. BIOTIN [Concomitant]
     Active Substance: BIOTIN
     Indication: Product used for unknown indication
  5. CITROCAL + D3 [Concomitant]
     Indication: Product used for unknown indication
  6. IC CITALOPRAM HBR [Concomitant]
     Indication: Product used for unknown indication
  7. LEVOTHYROXINE [Concomitant]
     Active Substance: LEVOTHYROXINE
     Indication: Product used for unknown indication
  8. NIFEDIPINE [Concomitant]
     Active Substance: NIFEDIPINE
     Indication: Product used for unknown indication
  9. VITAMIN E [Concomitant]
     Active Substance: .ALPHA.-TOCOPHEROL
     Indication: Product used for unknown indication

REACTIONS (3)
  - Oral candidiasis [Recovering/Resolving]
  - Oral pain [Recovering/Resolving]
  - Stomatitis [Recovering/Resolving]

NARRATIVE: CASE EVENT DATE: 20240507
